FAERS Safety Report 13893891 (Version 9)
Quarter: 2018Q1

REPORT INFORMATION
  Report Type: Spontaneous
  Country: JP (occurrence: JP)
  Receive Date: 20170822
  Receipt Date: 20180322
  Transmission Date: 20180508
  Serious: Yes (Other)
  Sender: FDA-Public Use
  Company Number: JP-009507513-1708JPN002328J

PATIENT
  Age: 83 Year
  Sex: Male
  Weight: 57 kg

DRUGS (5)
  1. KEYTRUDA [Suspect]
     Active Substance: PEMBROLIZUMAB
     Indication: LUNG ADENOCARCINOMA
     Dosage: 200 MG, Q3W
     Route: 041
     Dates: start: 20170727, end: 20170727
  2. LOXOPROFEN [Concomitant]
     Active Substance: LOXOPROFEN
     Indication: CANCER PAIN
     Dosage: 60 MG, TID
     Route: 048
     Dates: start: 20170707
  3. VOLTAREN [Concomitant]
     Active Substance: DICLOFENAC SODIUM
     Indication: CANCER PAIN
     Dosage: 25 MG, PRN
     Route: 054
     Dates: start: 20170707
  4. KEYTRUDA [Suspect]
     Active Substance: PEMBROLIZUMAB
     Dosage: 200 MG, Q3W
     Route: 041
     Dates: start: 20171011, end: 201803
  5. LANSOPRAZOLE. [Concomitant]
     Active Substance: LANSOPRAZOLE
     Indication: PROPHYLAXIS
     Dosage: 15 MG, QD
     Route: 048
     Dates: start: 20170707

REACTIONS (3)
  - Organising pneumonia [Recovered/Resolved]
  - Malignant neoplasm progression [Not Recovered/Not Resolved]
  - Haemoptysis [Recovered/Resolved]

NARRATIVE: CASE EVENT DATE: 20170813
